FAERS Safety Report 9239008 (Version 1)
Quarter: 2013Q2

REPORT INFORMATION
  Report Type: Spontaneous
  Country: US (occurrence: US)
  Receive Date: 20130418
  Receipt Date: 20130418
  Transmission Date: 20140414
  Serious: No
  Sender: FDA-Public Use
  Company Number: US-TEVA-399046USA

PATIENT
  Age: 65 Year
  Sex: Male
  Weight: 77.18 kg

DRUGS (4)
  1. AZILECT [Suspect]
     Indication: PARKINSON^S DISEASE
     Dates: start: 20130301
  2. TOPROL [Concomitant]
     Indication: ATRIAL FIBRILLATION
     Dosage: 50 MILLIGRAM DAILY;
  3. STALEVO [Concomitant]
     Indication: PARKINSON^S DISEASE
  4. ASPIRIN [Concomitant]

REACTIONS (1)
  - Pruritus [Not Recovered/Not Resolved]
